FAERS Safety Report 5078733-6 (Version None)
Quarter: 2006Q3

REPORT INFORMATION
  Report Type: 
  Country: None (occurrence: None)
  Receive Date: 20060720
  Receipt Date: 20060616
  Transmission Date: 20061208
  Serious: Yes (Other)
  Sender: FDA-Public Use
  Company Number: HQWYE294320JUN06

PATIENT
  Age: 76 Year
  Sex: Female
  Weight: 81.72 kg

DRUGS (5)
  1. ADVIL PM [Suspect]
     Indication: INSOMNIA
     Dosage: 2 CAPLETS ONE TIME, ORAL
     Route: 048
     Dates: start: 20060615, end: 20060615
  2. ADVIL PM [Suspect]
     Indication: PAIN
     Dosage: 2 CAPLETS ONE TIME, ORAL
     Route: 048
     Dates: start: 20060615, end: 20060615
  3. LASIX [Concomitant]
  4. MEVACOR [Concomitant]
  5. TENORMIN [Concomitant]

REACTIONS (1)
  - DRUG EFFECT DECREASED [None]
